FAERS Safety Report 6197734-8 (Version None)
Quarter: 2009Q2

REPORT INFORMATION
  Report Type: 
  Country: None (occurrence: None)
  Receive Date: 20090514
  Receipt Date: 20080605
  Transmission Date: 20091009
  Serious: Yes (Hospitalization)
  Sender: FDA-Public Use
  Company Number: WAES 0806USA01243

PATIENT
  Sex: Female

DRUGS (1)
  1. HYDRODIURIL [Suspect]
     Dosage: PO
     Route: 048

REACTIONS (1)
  - HYPOKALAEMIA [None]
